FAERS Safety Report 20553391 (Version 4)
Quarter: 2024Q1

REPORT INFORMATION
  Report Type: Spontaneous
  Country: US (occurrence: US)
  Receive Date: 20220304
  Receipt Date: 20240318
  Transmission Date: 20240410
  Serious: Yes (Disabling, Other)
  Sender: FDA-Public Use
  Company Number: US-ORGANON-O2203USA000338

PATIENT
  Sex: Female

DRUGS (4)
  1. SINGULAIR [Suspect]
     Active Substance: MONTELUKAST SODIUM
     Indication: Asthma
     Dosage: 10 MILLIGRAM
     Route: 048
     Dates: start: 1998, end: 2020
  2. IPRATROPIUM [Concomitant]
     Active Substance: IPRATROPIUM
     Indication: Asthma
     Dosage: UNK
     Dates: start: 2019
  3. VENTOLIN HFA [Concomitant]
     Active Substance: ALBUTEROL SULFATE
     Indication: Asthma
     Dosage: UNK
     Dates: start: 2019
  4. SUBOXONE [Concomitant]
     Active Substance: BUPRENORPHINE HYDROCHLORIDE\NALOXONE HYDROCHLORIDE
     Indication: Drug dependence
     Dosage: UNK
     Dates: start: 2020

REACTIONS (19)
  - Carpal tunnel syndrome [Not Recovered/Not Resolved]
  - Neuropsychological symptoms [Not Recovered/Not Resolved]
  - Suicidal ideation [Unknown]
  - Intervertebral disc protrusion [Not Recovered/Not Resolved]
  - Brain injury [Unknown]
  - Nervous system injury [Unknown]
  - Dysphemia [Not Recovered/Not Resolved]
  - Hallucination [Not Recovered/Not Resolved]
  - Depression [Not Recovered/Not Resolved]
  - Anxiety [Not Recovered/Not Resolved]
  - Bradycardia [Unknown]
  - Post-traumatic stress disorder [Not Recovered/Not Resolved]
  - Suicide attempt [Unknown]
  - Nephrolithiasis [Unknown]
  - Nightmare [Unknown]
  - Tic [Unknown]
  - Tremor [Unknown]
  - Abdominal pain [Unknown]
  - Back pain [Unknown]

NARRATIVE: CASE EVENT DATE: 19980101
